FAERS Safety Report 5337550-X (Version None)
Quarter: 2007Q2

REPORT INFORMATION
  Report Type: 
  Country: None (occurrence: None)
  Receive Date: 20070524
  Receipt Date: 20070514
  Transmission Date: 20071010
  Serious: Yes (Other)
  Sender: FDA-Public Use
  Company Number: 2007S1004239

PATIENT
  Sex: Male

DRUGS (4)
  1. FENTANYL TRANSDERMAL SYSTEM [Suspect]
     Indication: PERIODIC LIMB MOVEMENT DISORDER
     Dosage: SE IMAGE
     Route: 062
  2. FENTANYL TRANSDERMAL SYSTEM [Suspect]
     Indication: PERIODIC LIMB MOVEMENT DISORDER
     Dosage: SEE IMAGE
     Route: 062
  3. ALPRAZOLAM [Concomitant]
  4. CLONAZEPAM [Concomitant]

REACTIONS (8)
  - FATIGUE [None]
  - INCORRECT DOSE ADMINISTERED [None]
  - INSOMNIA [None]
  - MUSCLE TWITCHING [None]
  - PHARMACEUTICAL PRODUCT COMPLAINT [None]
  - RESTLESS LEGS SYNDROME [None]
  - RESTLESSNESS [None]
  - THERAPEUTIC RESPONSE UNEXPECTED WITH DRUG SUBSTITUTION [None]
